FAERS Safety Report 24148625 (Version 1)
Quarter: 2024Q3

REPORT INFORMATION
  Report Type: Spontaneous
  Country: US (occurrence: US)
  Receive Date: 20240729
  Receipt Date: 20240729
  Transmission Date: 20241016
  Serious: No
  Sender: SANOFI AVENTIS
  Company Number: US-SA-SAC20240724001110

PATIENT
  Age: 57 Year
  Sex: Female

DRUGS (1)
  1. DUPIXENT [Suspect]
     Active Substance: DUPILUMAB
     Dosage: 300 MG, QOW
     Route: 058

REACTIONS (7)
  - Dry skin [Recovering/Resolving]
  - Increased tendency to bruise [Recovering/Resolving]
  - Skin laceration [Recovering/Resolving]
  - Skin exfoliation [Recovering/Resolving]
  - Pruritus [Unknown]
  - Therapeutic response shortened [Unknown]
  - Product administered at inappropriate site [Unknown]
